FAERS Safety Report 13366980 (Version 1)
Quarter: 2017Q1

REPORT INFORMATION
  Report Type: Spontaneous
  Country: US (occurrence: US)
  Receive Date: 20170323
  Receipt Date: 20170323
  Transmission Date: 20170429
  Serious: Yes (Hospitalization)
  Sender: FDA-Public Use
  Company Number: None

PATIENT
  Age: 49 Year
  Sex: Female

DRUGS (1)
  1. DIVALPROEX SODIUM SPRINKLE CAPS 125MG [Suspect]
     Active Substance: DIVALPROEX SODIUM
     Indication: SEIZURE
     Route: 048
     Dates: start: 20161012, end: 20170209

REACTIONS (17)
  - Feeling abnormal [None]
  - Seizure [None]
  - Blood urea nitrogen/creatinine ratio increased [None]
  - Cerebral haemorrhage [None]
  - Sedation [None]
  - Red cell distribution width increased [None]
  - Cognitive disorder [None]
  - Lethargy [None]
  - Gait disturbance [None]
  - Ammonia increased [None]
  - Psychogenic seizure [None]
  - White blood cell count decreased [None]
  - Red blood cell count decreased [None]
  - Platelet count decreased [None]
  - Blood albumin decreased [None]
  - Fall [None]
  - Posture abnormal [None]

NARRATIVE: CASE EVENT DATE: 20170104
